FAERS Safety Report 20056780 (Version 3)
Quarter: 2022Q1

REPORT INFORMATION
  Report Type: Spontaneous
  Country: DE (occurrence: DE)
  Receive Date: 20211111
  Receipt Date: 20220220
  Transmission Date: 20220423
  Serious: Yes (Hospitalization, Other)
  Sender: FDA-Public Use
  Company Number: None

PATIENT
  Age: 80 Year
  Sex: Male
  Weight: 87 kg

DRUGS (7)
  1. CLOPIDOGREL [Suspect]
     Active Substance: CLOPIDOGREL BISULFATE
     Indication: Aphasia
     Dosage: INTAKE CONTINUED , UNIT DOSE : 75 MG
     Route: 048
     Dates: start: 20211006
  2. CLOPIDOGREL [Suspect]
     Active Substance: CLOPIDOGREL BISULFATE
     Indication: Dysarthria
     Dosage: PAUSED 1 WEEK BEFORE SURGERY , UNIT DOSE : 75 MG
     Route: 048
     Dates: start: 202106, end: 20210912
  3. CLOPIDOGREL [Suspect]
     Active Substance: CLOPIDOGREL BISULFATE
     Indication: Cerebral infarction
     Dosage: ATTEMPT TO TAKE
     Route: 048
     Dates: start: 20210929
  4. CLOPIDOGREL [Suspect]
     Active Substance: CLOPIDOGREL BISULFATE
     Indication: Cerebrovascular accident prophylaxis
  5. ATORVASTATIN [Concomitant]
     Active Substance: ATORVASTATIN
     Indication: Coronary artery disease
     Dosage: 80 MILLIGRAM DAILY; 0-0-1
  6. PROSTAGUTT [Concomitant]
     Dosage: 320 MILLIGRAM DAILY; 1-0-1
  7. flohsamen [Concomitant]
     Dosage: 1 GRAM DAILY; 0-1-0

REACTIONS (8)
  - Thrombosis [Recovered/Resolved]
  - Aphasia [Recovered/Resolved]
  - Wound closure [Recovered/Resolved]
  - Blood urine present [Recovered/Resolved]
  - Language disorder [Recovered/Resolved]
  - Pain [Not Recovered/Not Resolved]
  - Haematoma [Not Recovered/Not Resolved]
  - Haematuria [Recovered/Resolved]

NARRATIVE: CASE EVENT DATE: 20210929
